FAERS Safety Report 7634864 (Version 9)
Quarter: 2012Q4

REPORT INFORMATION
  Report Type: Report from Study
  Country: DE (occurrence: DE)
  Receive Date: 20101020
  Receipt Date: 20120928
  Transmission Date: 20130627
  Serious: Yes (Death, Hospitalization)
  Sender: FDA-Public Use
  Company Number: DE-ROCHE-717080

PATIENT
  Age: 65 Year
  Sex: Female
  Weight: 91.4 kg

DRUGS (11)
  1. HERCEPTIN [Suspect]
     Indication: BREAST CANCER
     Dosage: FORM: VIALS, DOSE LEVEL: 6 MG/KG
     Route: 042
     Dates: start: 20100504, end: 20100722
  2. CARBOPLATIN [Suspect]
     Indication: BREAST CANCER
     Dosage: 6 AUC, Date of last dose prior to SAE: 04/May/2010
     Route: 042
     Dates: start: 20100504
  3. CARBOPLATIN [Suspect]
     Dosage: 5 AUC
     Route: 042
     Dates: start: 20100615, end: 20100722
  4. DOCETAXEL [Suspect]
     Indication: BREAST CANCER
     Route: 042
     Dates: start: 20100504
  5. DOCETAXEL [Suspect]
     Route: 042
     Dates: start: 20100615, end: 20100722
  6. CELLONDAN [Concomitant]
     Route: 065
     Dates: start: 20100504, end: 20100722
  7. EMEND [Concomitant]
     Route: 065
     Dates: start: 20100504, end: 20100722
  8. LOPERAMIDE [Concomitant]
     Dosage: TDD: MG
     Route: 065
     Dates: start: 20100706, end: 20100722
  9. BISOPROLOL [Concomitant]
     Route: 065
     Dates: start: 20100626, end: 20100722
  10. MCP [Concomitant]
     Route: 065
     Dates: start: 20100504, end: 20100722
  11. DEXAMETHASONE [Concomitant]
     Route: 065
     Dates: start: 20100525, end: 20100722

REACTIONS (2)
  - Diarrhoea [Fatal]
  - Neutropenia [Fatal]
